FAERS Safety Report 9256811 (Version 1)
Quarter: 2013Q2

REPORT INFORMATION
  Report Type: Spontaneous
  Country: US (occurrence: None)
  Receive Date: 20130423
  Receipt Date: 20130423
  Transmission Date: 20140414
  Serious: Yes (Other)
  Sender: FDA-Public Use
  Company Number: 1646433

PATIENT
  Age: 81 Year
  Sex: Male
  Weight: 81 kg

DRUGS (6)
  1. GENTAMICIN SULFATE [Suspect]
     Indication: PRODUCT USED FOR UNKNOWN INDICATION
  2. VANCOMYCIN HYDROCHLORIDE [Suspect]
     Indication: SEPSIS
     Route: 042
     Dates: start: 20121130, end: 20121201
  3. VANCOMYCIN HYDROCHLORIDE [Suspect]
     Route: 042
     Dates: start: 20121130, end: 20121201
  4. ZOSYN [Suspect]
     Indication: SEPSIS
     Route: 042
     Dates: start: 20121130, end: 20121203
  5. ZOSYN [Suspect]
     Route: 042
     Dates: start: 20121130, end: 20121203
  6. AZTREONAM [Concomitant]

REACTIONS (1)
  - Renal failure acute [None]
